FAERS Safety Report 5572112-0 (Version None)
Quarter: 2007Q4

REPORT INFORMATION
  Report Type: 
  Country: None (occurrence: None)
  Receive Date: 20071219
  Receipt Date: 20071205
  Transmission Date: 20080405
  Serious: Yes (Hospitalization, Other)
  Sender: FDA-Public Use
  Company Number: 2007US001790

PATIENT
  Age: 6 Year
  Sex: Male
  Weight: 19.4 kg

DRUGS (16)
  1. PROGRAF [Suspect]
     Indication: RENAL TRANSPLANT
     Dates: start: 20050913
  2. DACLIZUMAB(DACLIZUMAB) [Suspect]
     Indication: RENAL TRANSPLANT
     Dosage: SEE IMAGE
     Route: 042
     Dates: start: 20050914, end: 20050914
  3. DACLIZUMAB(DACLIZUMAB) [Suspect]
     Indication: RENAL TRANSPLANT
     Dosage: SEE IMAGE
     Route: 042
     Dates: start: 20050926, end: 20050926
  4. DACLIZUMAB(DACLIZUMAB) [Suspect]
     Indication: RENAL TRANSPLANT
     Dosage: SEE IMAGE
     Route: 042
     Dates: start: 20051010, end: 20051010
  5. DACLIZUMAB(DACLIZUMAB) [Suspect]
     Indication: RENAL TRANSPLANT
     Dosage: SEE IMAGE
     Route: 042
     Dates: start: 20051024, end: 20051024
  6. DACLIZUMAB(DACLIZUMAB) [Suspect]
     Indication: RENAL TRANSPLANT
     Dosage: SEE IMAGE
     Route: 042
     Dates: start: 20051114, end: 20051114
  7. PREVACID [Concomitant]
  8. CLARITIN [Concomitant]
  9. SODIUM CARBONATE (SODIUM BICARBONATE) [Concomitant]
  10. NASONEX [Concomitant]
  11. KEFLEX [Concomitant]
  12. PROBIOTICA (LACTOBACILLUS REUTERI) [Concomitant]
  13. PREDNISOLONE ACETATE [Concomitant]
  14. VALCYTE [Concomitant]
  15. CELLCEPT [Concomitant]
  16. DILTIAZEM [Concomitant]

REACTIONS (19)
  - ABDOMINAL ADHESIONS [None]
  - BACTERAEMIA [None]
  - DEVICE OCCLUSION [None]
  - FUNGAEMIA [None]
  - GASTROINTESTINAL NECROSIS [None]
  - HYDRONEPHROSIS [None]
  - ILEOSTOMY CLOSURE [None]
  - INTESTINAL OBSTRUCTION [None]
  - KLEBSIELLA SEPSIS [None]
  - MEDICAL DEVICE IMPLANTATION [None]
  - PERINEPHRIC COLLECTION [None]
  - PNEUMOTHORAX [None]
  - RENAL IMPAIRMENT [None]
  - RENAL TUBULAR NECROSIS [None]
  - TACHYCARDIA [None]
  - THERAPEUTIC RESPONSE DECREASED [None]
  - URETERAL STENT INSERTION [None]
  - URETERIC OBSTRUCTION [None]
  - UROSEPSIS [None]
